FAERS Safety Report 15326482 (Version 1)
Quarter: 2018Q3

REPORT INFORMATION
  Report Type: Report from Study
  Country: None (occurrence: US)
  Receive Date: 20180828
  Receipt Date: 20180828
  Transmission Date: 20181010
  Serious: Yes (Other)
  Sender: FDA-Public Use
  Company Number: US-ABBVIE-17K-163-2098104-00

PATIENT
  Age: 40 Year
  Sex: Female
  Weight: 75.36 kg

DRUGS (3)
  1. HUMIRA [Suspect]
     Active Substance: ADALIMUMAB
     Route: 058
     Dates: start: 201708, end: 201710
  2. HUMIRA [Suspect]
     Active Substance: ADALIMUMAB
     Indication: PSORIASIS
     Route: 058
     Dates: start: 2010, end: 201707
  3. HUMIRA [Suspect]
     Active Substance: ADALIMUMAB
     Route: 058
     Dates: start: 201805

REACTIONS (9)
  - Fall [Recovered/Resolved]
  - Contusion [Not Recovered/Not Resolved]
  - Dental implantation [Recovered/Resolved]
  - Psoriasis [Recovered/Resolved]
  - Exposure during pregnancy [Unknown]
  - Prolonged labour [Recovered/Resolved]
  - Beta haemolytic streptococcal infection [Unknown]
  - Intentional product misuse [Recovered/Resolved]
  - Caesarean section [Recovered/Resolved]

NARRATIVE: CASE EVENT DATE: 201708
